FAERS Safety Report 12011640 (Version 1)
Quarter: 2016Q1

REPORT INFORMATION
  Report Type: Report from Study
  Country: US (occurrence: US)
  Receive Date: 20160205
  Receipt Date: 20160205
  Transmission Date: 20160526
  Serious: Yes (Other)
  Sender: FDA-Public Use
  Company Number: US-BIOGEN-2016BI00177537

PATIENT
  Sex: Female

DRUGS (1)
  1. AVONEX [Suspect]
     Active Substance: INTERFERON BETA-1A
     Indication: MULTIPLE SCLEROSIS
     Route: 030
     Dates: start: 20120330, end: 20151124

REACTIONS (3)
  - Drug effect decreased [Recovered/Resolved]
  - Liver injury [Recovered/Resolved with Sequelae]
  - Multiple sclerosis [Recovered/Resolved]
